FAERS Safety Report 18104631 (Version 3)
Quarter: 2021Q1

REPORT INFORMATION
  Report Type: Spontaneous
  Country: US (occurrence: US)
  Receive Date: 20200803
  Receipt Date: 20210201
  Transmission Date: 20210419
  Serious: Yes (Disabling)
  Sender: FDA-Public Use
  Company Number: US-TEVA-2020-US-1808796

PATIENT
  Age: 53 Year
  Sex: Female

DRUGS (10)
  1. MELATONIN [Concomitant]
     Active Substance: MELATONIN
     Dates: start: 2009
  2. ARIPIPRAZOLE. [Concomitant]
     Active Substance: ARIPIPRAZOLE
     Dates: start: 2009
  3. PERJETA [Concomitant]
     Active Substance: PERTUZUMAB
  4. BUPROPION. [Concomitant]
     Active Substance: BUPROPION
     Dates: start: 2009
  5. LORAZEPAM. [Concomitant]
     Active Substance: LORAZEPAM
     Dates: start: 2009
  6. HERCEPTIN [Concomitant]
     Active Substance: TRASTUZUMAB
  7. DOCETAXEL. [Suspect]
     Active Substance: DOCETAXEL
     Indication: BREAST CANCER
     Dosage: DOSAGE: 75 MILLIGRAM, NO OF CYCLE: 6, EVERY THREE WEEKS
     Route: 065
     Dates: start: 20151130, end: 20160322
  8. PARAPLATIN [Concomitant]
     Active Substance: CARBOPLATIN
  9. MULTIVITAMIN [Concomitant]
     Active Substance: VITAMINS
     Dates: start: 2009
  10. MIRTAZAPINE. [Concomitant]
     Active Substance: MIRTAZAPINE
     Dates: start: 2009

REACTIONS (4)
  - Alopecia [Not Recovered/Not Resolved]
  - Hair texture abnormal [Not Recovered/Not Resolved]
  - Madarosis [Not Recovered/Not Resolved]
  - Hair colour changes [Not Recovered/Not Resolved]

NARRATIVE: CASE EVENT DATE: 2016
